FAERS Safety Report 14543497 (Version 1)
Quarter: 2018Q1

REPORT INFORMATION
  Report Type: Spontaneous
  Country: TN (occurrence: TN)
  Receive Date: 20180216
  Receipt Date: 20180216
  Transmission Date: 20180509
  Serious: Yes (Life-Threatening, Hospitalization, Other)
  Sender: FDA-Public Use
  Company Number: TN-BAUSCH-BL-2016-001199

PATIENT
  Age: 26 Year
  Sex: Female

DRUGS (4)
  1. SALBUTAMOL [Suspect]
     Active Substance: ALBUTEROL
     Dosage: 1 DOSAGE FORM (SMALL DOSE) IN EVERY 15 MINUTES?NEBULIZED
     Route: 045
  2. SALBUTAMOL [Suspect]
     Active Substance: ALBUTEROL
     Indication: ASTHMA
     Dosage: 2 MG IN 1 HOUR
     Route: 042
  3. HYDROCORTISONE HEMISUCCINATE [Concomitant]
     Active Substance: HYDROCORTISONE HEMISUCCINATE
     Indication: PRODUCT USED FOR UNKNOWN INDICATION
     Dosage: 100 MILLIGRAM IN 4 HOUR
  4. SALMETEROL [Concomitant]
     Active Substance: SALMETEROL
     Indication: ASTHMA
     Dosage: 50 MICROGRAM IN 12 HOUR

REACTIONS (3)
  - Pulmonary oedema [Recovering/Resolving]
  - Left ventricular dysfunction [Unknown]
  - Myocarditis [Recovering/Resolving]
